FAERS Safety Report 4745787-3 (Version None)
Quarter: 2005Q3

REPORT INFORMATION
  Report Type: 
  Country: None (occurrence: None)
  Receive Date: 20050815
  Receipt Date: 20050815
  Transmission Date: 20060218
  Serious: Yes (Hospitalization)
  Sender: FDA-Public Use
  Company Number: None

PATIENT
  Age: 73 Year
  Sex: Male
  Weight: 98.8842 kg

DRUGS (1)
  1. PENICILLIN [Suspect]
     Dosage: 1  DAILY
     Dates: start: 20050717, end: 20050717

REACTIONS (3)
  - DYSPNOEA [None]
  - LOCAL SWELLING [None]
  - SWOLLEN TONGUE [None]
